FAERS Safety Report 17225515 (Version 4)
Quarter: 2020Q4

REPORT INFORMATION
  Report Type: Report from Study
  Country: BR (occurrence: BR)
  Receive Date: 20200102
  Receipt Date: 20201228
  Transmission Date: 20210113
  Serious: Yes (Other)
  Sender: FDA-Public Use
  Company Number: PHHY2018BR004116

PATIENT
  Age: 31 Year
  Sex: Female
  Weight: 70 kg

DRUGS (3)
  1. COSENTYX [Suspect]
     Active Substance: SECUKINUMAB
     Indication: PSORIASIS
     Dosage: 300 MG, QW
     Route: 058
     Dates: start: 20200315
  2. COSENTYX [Suspect]
     Active Substance: SECUKINUMAB
     Indication: ANKYLOSING SPONDYLITIS
     Dosage: 300 MG (TWO PENS/TWO AMPOULES OF 150MG), QMO
     Route: 058
     Dates: start: 20170712
  3. COSENTYX [Suspect]
     Active Substance: SECUKINUMAB
     Indication: PSORIATIC ARTHROPATHY
     Dosage: 300 MG (TWO PENS/TWO AMPOULES OF 150MG), QMO
     Route: 058
     Dates: start: 200802

REACTIONS (12)
  - COVID-19 [Unknown]
  - Decreased immune responsiveness [Not Recovered/Not Resolved]
  - Weight fluctuation [Unknown]
  - Injury [Unknown]
  - Pain [Unknown]
  - Rheumatic disorder [Not Recovered/Not Resolved]
  - Hypothyroidism [Unknown]
  - Skin disorder [Not Recovered/Not Resolved]
  - Skin lesion [Unknown]
  - Normal newborn [Unknown]
  - Influenza [Recovered/Resolved]
  - Maternal exposure timing unspecified [Unknown]

NARRATIVE: CASE EVENT DATE: 2018
